FAERS Safety Report 4875359-1 (Version None)
Quarter: 2006Q1

REPORT INFORMATION
  Report Type: 
  Country: None (occurrence: None)
  Receive Date: 20060109
  Receipt Date: 20051005
  Transmission Date: 20060701
  Serious: Yes (Hospitalization)
  Sender: FDA-Public Use
  Company Number: US-MERCK-0510USA03998

PATIENT
  Age: 61 Year
  Sex: Male
  Weight: 86 kg

DRUGS (3)
  1. VIOXX [Suspect]
     Indication: ARTHRITIS
     Route: 048
  2. LIPITOR [Concomitant]
     Route: 065
     Dates: start: 20020730
  3. RANITIDINE [Concomitant]
     Route: 065

REACTIONS (13)
  - ANAL HAEMORRHAGE [None]
  - ANGINA PECTORIS [None]
  - ANGINA UNSTABLE [None]
  - CHEST PAIN [None]
  - CORONARY ARTERY DISEASE [None]
  - HAEMOGLOBIN DECREASED [None]
  - HYPERLIPIDAEMIA [None]
  - HYPERTENSION [None]
  - INCISION SITE COMPLICATION [None]
  - PERIPHERAL VASCULAR DISORDER [None]
  - PNEUMONIA [None]
  - WEIGHT INCREASED [None]
  - WHEEZING [None]
